FAERS Safety Report 8876887 (Version 1)
Quarter: 2012Q4

REPORT INFORMATION
  Report Type: 
  Country: US (occurrence: US)
  Receive Date: 20121023
  Receipt Date: 20121023
  Transmission Date: 20130627
  Serious: No
  Sender: FDA-Public Use
  Company Number: US-AMGEN-USASP2012054210

PATIENT
  Age: 64 Year
  Sex: Female
  Weight: 62.59 kg

DRUGS (5)
  1. ENBREL [Suspect]
     Indication: PRODUCT USED FOR UNKNOWN INDICATION
     Dosage: 50 mg, qwk
     Route: 058
  2. PANTOPRAZOLE [Concomitant]
     Dosage: 40 mg, UNK
  3. HYDROXYCHLOROQUINE [Concomitant]
     Dosage: 200 mg, UNK
  4. LEXAPRO [Concomitant]
     Dosage: 20 mg, UNK
  5. ZETIA [Concomitant]
     Dosage: 10 mg, UNK

REACTIONS (3)
  - Injection site bruising [Unknown]
  - Injection site erythema [Unknown]
  - Injection site pruritus [Unknown]
